FAERS Safety Report 11316603 (Version 2)
Quarter: 2015Q3

REPORT INFORMATION
  Report Type: Spontaneous
  Country: BR (occurrence: BR)
  Receive Date: 20150728
  Receipt Date: 20150901
  Transmission Date: 20151125
  Serious: Yes (Other)
  Sender: FDA-Public Use
  Company Number: BR-PFIZER INC-2015246617

PATIENT
  Age: 59 Year
  Sex: Female

DRUGS (2)
  1. FIBRASE [Suspect]
     Active Substance: CHLORAMPHENICOL
     Indication: INJURY
     Dosage: UNK
     Dates: start: 1982
  2. FIBRASE [Suspect]
     Active Substance: CHLORAMPHENICOL
     Indication: PROMOTION OF WOUND HEALING

REACTIONS (5)
  - Foot deformity [Unknown]
  - Systemic lupus erythematosus [Unknown]
  - Immunodeficiency [Unknown]
  - Impaired healing [Unknown]
  - Thrombosis [Unknown]
